FAERS Safety Report 7764809-9 (Version None)
Quarter: 2011Q3

REPORT INFORMATION
  Report Type: 
  Country: None (occurrence: None)
  Receive Date: 20110920
  Receipt Date: 20110920
  Transmission Date: 20111222
  Serious: Yes (Other)
  Sender: FDA-Public Use
  Company Number: None

PATIENT
  Age: 64 Year
  Sex: Male
  Weight: 94 kg

DRUGS (1)
  1. EPTIFIBATIDE [Suspect]
     Indication: CORONARY ARTERIAL STENT INSERTION
     Dosage: 17 MG ONCE IV
     Route: 042
     Dates: start: 20110701, end: 20110702

REACTIONS (7)
  - TACHYPNOEA [None]
  - VOMITING [None]
  - HYPOTENSION [None]
  - PALLOR [None]
  - NAUSEA [None]
  - BLOOD PRESSURE DECREASED [None]
  - HYPERHIDROSIS [None]
